FAERS Safety Report 8505422-5 (Version None)
Quarter: 2012Q2

REPORT INFORMATION
  Report Type: 
  Country: None (occurrence: None)
  Receive Date: 20120405
  Receipt Date: 20091007
  Transmission Date: 20120825
  Serious: Yes (Hospitalization)
  Sender: FDA-Public Use
  Company Number: PHEH2009US13384

PATIENT
  Age: 82 Year
  Sex: Female

DRUGS (1)
  1. RECLAST [Suspect]
     Dosage: 5 MG, ONCE/SINGLE, INTRAVENOUS
     Route: 042

REACTIONS (3)
  - PAIN IN EXTREMITY [None]
  - BONE PAIN [None]
  - C-REACTIVE PROTEIN INCREASED [None]
